FAERS Safety Report 5074645-2 (Version None)
Quarter: 2006Q3

REPORT INFORMATION
  Report Type: 
  Country: None (occurrence: None)
  Receive Date: 20060803
  Receipt Date: 20060719
  Transmission Date: 20061208
  Serious: Yes (Death, Hospitalization)
  Sender: FDA-Public Use
  Company Number: 2006-01272

PATIENT
  Age: 70 Year
  Sex: Female
  Weight: 48 kg

DRUGS (11)
  1. VELCADE [Suspect]
     Indication: MULTIPLE MYELOMA
     Dosage: SEE IMAGE
     Route: 042
     Dates: start: 20020409, end: 20020813
  2. VELCADE [Suspect]
     Indication: MULTIPLE MYELOMA
     Dosage: SEE IMAGE
     Route: 042
     Dates: start: 20031117, end: 20040118
  3. VELCADE [Suspect]
     Indication: MULTIPLE MYELOMA
     Dosage: SEE IMAGE
     Route: 042
     Dates: start: 20040208, end: 20040321
  4. VELCADE [Suspect]
     Indication: MULTIPLE MYELOMA
     Dosage: SEE IMAGE
     Route: 042
     Dates: start: 20040322, end: 20040411
  5. VELCADE [Suspect]
     Indication: MULTIPLE MYELOMA
     Dosage: SEE IMAGE
     Route: 042
     Dates: start: 20040412, end: 20040523
  6. VELCADE [Suspect]
     Indication: MULTIPLE MYELOMA
     Dosage: SEE IMAGE
     Route: 042
     Dates: start: 20050510, end: 20050726
  7. VELCADE [Suspect]
     Indication: MULTIPLE MYELOMA
     Dosage: SEE IMAGE
     Route: 042
     Dates: start: 20050829, end: 20060102
  8. VELCADE [Suspect]
     Indication: MULTIPLE MYELOMA
     Dosage: SEE IMAGE
     Route: 042
     Dates: start: 20060117, end: 20060121
  9. VELCADE [Suspect]
     Indication: MULTIPLE MYELOMA
     Dosage: SEE IMAGE
     Route: 042
     Dates: start: 20060320, end: 20060410
  10. PXD101(PXD101) [Suspect]
     Indication: MULTIPLE MYELOMA
     Dosage: 435.00 MG
     Dates: start: 20050829, end: 20060102
  11. PXD101(PXD101) [Suspect]
     Indication: MULTIPLE MYELOMA
     Dosage: 435.00 MG
     Dates: start: 20060320, end: 20060412

REACTIONS (9)
  - DISEASE PROGRESSION [None]
  - HAEMORRHAGE [None]
  - LOSS OF CONSCIOUSNESS [None]
  - LUNG INFILTRATION [None]
  - PLEURAL EFFUSION [None]
  - SEPSIS [None]
  - THROMBOCYTOPENIA [None]
  - URINARY INCONTINENCE [None]
  - VOMITING [None]
